FAERS Safety Report 9369849 (Version 1)
Quarter: 2013Q2

REPORT INFORMATION
  Report Type: Report from Study
  Country: US (occurrence: US)
  Receive Date: 20130626
  Receipt Date: 20130626
  Transmission Date: 20140414
  Serious: Yes (Hospitalization)
  Sender: FDA-Public Use
  Company Number: US-ROCHE-1240685

PATIENT
  Age: 66 Year
  Sex: Female
  Weight: 84 kg

DRUGS (6)
  1. TRASTUZUMAB [Suspect]
     Indication: BREAST CANCER
     Dosage: OVER 90 MIN ON DAY 1 WK 1 ONLY
     Route: 042
     Dates: start: 20121112
  2. TRASTUZUMAB [Suspect]
     Dosage: OVER 30 MIN WEEKLY X 11 DOSES
     Route: 042
  3. TRASTUZUMAB [Suspect]
     Dosage: OVER 30-90 MIN ON DAY 1 Q 3 WKS UNTIL 1 YEAR AFTER 1ST TRASTUZUMAB DOSE
     Route: 042
  4. DOXORUBICIN [Suspect]
     Indication: BREAST CANCER
     Dosage: OVER 15 MIN ON DAY 1 X 4 CYCLES
     Route: 042
  5. CYCLOPHOSPHAMIDE [Suspect]
     Indication: BREAST CANCER
     Dosage: OVER 30 MIN ON DAY 1 X 4 CYCLES
     Route: 042
  6. PACLITAXEL [Suspect]
     Indication: BREAST CANCER
     Dosage: OVER 60 MIN, WEEKLY X 12 DOSES
     Route: 042

REACTIONS (2)
  - Myocardial infarction [Recovered/Resolved with Sequelae]
  - Hyperglycaemia [Unknown]
